FAERS Safety Report 25355535 (Version 1)
Quarter: 2025Q2

REPORT INFORMATION
  Report Type: Spontaneous
  Country: US (occurrence: US)
  Receive Date: 20250525
  Receipt Date: 20250525
  Transmission Date: 20250717
  Serious: No
  Sender: ELI LILLY AND COMPANY
  Company Number: US-ELI_LILLY_AND_COMPANY-US202505017673

PATIENT
  Age: 39 Year
  Sex: Female
  Weight: 79.819 kg

DRUGS (1)
  1. HUMALOG [Suspect]
     Active Substance: INSULIN LISPRO
     Indication: Product used for unknown indication
     Route: 065

REACTIONS (8)
  - Discomfort [Unknown]
  - Acne [Unknown]
  - Skin swelling [Unknown]
  - Skin burning sensation [Unknown]
  - Skin irritation [Unknown]
  - Erythema [Unknown]
  - Pain [Unknown]
  - Pruritus [Unknown]

NARRATIVE: CASE EVENT DATE: 20250514
